FAERS Safety Report 5307384-0 (Version None)
Quarter: 2007Q1

REPORT INFORMATION
  Report Type: 
  Country: None (occurrence: None)
  Receive Date: 20070201
  Receipt Date: 20061208
  Transmission Date: 20070707
  Serious: No
  Sender: FDA-Public Use
  Company Number: 2006PV026683

PATIENT
  Age: 51 Year
  Sex: Female

DRUGS (2)
  1. BYETTA [Suspect]
     Indication: DIABETES MELLITUS NON-INSULIN-DEPENDENT
     Dosage: 5 MCG; BID; SC
     Route: 058
     Dates: start: 20061205
  2. IMITREX [Concomitant]

REACTIONS (6)
  - DYSGEUSIA [None]
  - HEADACHE [None]
  - HUNGER [None]
  - INJECTION SITE BRUISING [None]
  - MOOD ALTERED [None]
  - NAUSEA [None]
